FAERS Safety Report 23263222 (Version 1)
Quarter: 2023Q4

REPORT INFORMATION
  Report Type: Spontaneous
  Country: US (occurrence: US)
  Receive Date: 20231205
  Receipt Date: 20231205
  Transmission Date: 20240110
  Serious: No
  Sender: FDA-Public Use
  Company Number: US-HALOZYME THERAPEUTICS, INC.-2023-US-XYO-02814

PATIENT

DRUGS (2)
  1. XYOSTED [Suspect]
     Active Substance: TESTOSTERONE ENANTHATE
     Indication: Blood testosterone decreased
     Dosage: 75 MILLIGRAM, Q 1 WK
     Route: 058
     Dates: start: 202307
  2. XYOSTED [Suspect]
     Active Substance: TESTOSTERONE ENANTHATE
     Dosage: 50 MILLIGRAM, Q 1 WK
     Route: 058
     Dates: start: 20230710

REACTIONS (1)
  - Blood testosterone increased [None]

NARRATIVE: CASE EVENT DATE: 20230710
